FAERS Safety Report 12280993 (Version 1)
Quarter: 2016Q2

REPORT INFORMATION
  Report Type: Spontaneous
  Country: FR (occurrence: FR)
  Receive Date: 20160419
  Receipt Date: 20160419
  Transmission Date: 20160815
  Serious: Yes (Other)
  Sender: FDA-Public Use
  Company Number: FR-BIOVITRUM-2016FR0251

PATIENT
  Age: 76 Year
  Sex: Female

DRUGS (4)
  1. KINERET [Suspect]
     Active Substance: ANAKINRA
     Indication: ERDHEIM-CHESTER DISEASE
  2. VEMURAFENIB [Suspect]
     Active Substance: VEMURAFENIB
     Indication: ERDHEIM-CHESTER DISEASE
  3. KINERET [Suspect]
     Active Substance: ANAKINRA
  4. VEMURAFENIB [Suspect]
     Active Substance: VEMURAFENIB

REACTIONS (3)
  - Pleuropericarditis [Recovered/Resolved]
  - Intracardiac mass [Recovered/Resolved]
  - Palmar-plantar erythrodysaesthesia syndrome [Recovered/Resolved]
